FAERS Safety Report 4455831-9 (Version None)
Quarter: 2004Q3

REPORT INFORMATION
  Report Type: 
  Country: None (occurrence: None)
  Receive Date: 20040920
  Receipt Date: 20040908
  Transmission Date: 20050211
  Serious: Yes (Hospitalization)
  Sender: FDA-Public Use
  Company Number: S04-USA-06062-01

PATIENT
  Age: 70 Year
  Sex: Male

DRUGS (10)
  1. CELEXA [Suspect]
     Indication: DEPRESSION
     Dosage: 10 MG QD PO
     Route: 048
     Dates: start: 19980101
  2. COUMADIN [Concomitant]
  3. VANTIN [Concomitant]
  4. LISINOPRIL [Concomitant]
  5. FLONASE (FLUITICASONE PROPIONATE) [Concomitant]
  6. HYDROCHLOROTHIAZIDE [Concomitant]
  7. SPIRONOLACTONE [Concomitant]
  8. CATAPRES-TTS-1 [Concomitant]
  9. ZOCOR [Concomitant]
  10. CALTRATE (CALCIUM CARBONATE) [Concomitant]

REACTIONS (8)
  - CEREBROVASCULAR ACCIDENT [None]
  - DIARRHOEA [None]
  - FALL [None]
  - GRAND MAL CONVULSION [None]
  - MYOCARDIAL INFARCTION [None]
  - PETIT MAL EPILEPSY [None]
  - SPINAL FRACTURE [None]
  - TREMOR [None]
